FAERS Safety Report 23757093 (Version 3)
Quarter: 2024Q4

REPORT INFORMATION
  Report Type: Spontaneous
  Country: US (occurrence: US)
  Receive Date: 20240418
  Receipt Date: 20241121
  Transmission Date: 20250115
  Serious: No
  Sender: PFIZER
  Company Number: US-PFIZER INC-PV202400051267

PATIENT
  Age: 67 Year
  Sex: Female

DRUGS (21)
  1. DOCETAXEL [Suspect]
     Active Substance: DOCETAXEL
     Indication: Breast cancer metastatic
     Dosage: 165 MG, CYCLIC (CYCLE 1) EVERY THREE WEEKS
     Dates: start: 20180330, end: 20180330
  2. DOCETAXEL [Suspect]
     Active Substance: DOCETAXEL
     Dosage: 124 MG, CYCLIC (CYCLE 2) EVERY THREE WEEKS
     Dates: start: 201804, end: 201804
  3. DOCETAXEL [Suspect]
     Active Substance: DOCETAXEL
     Dosage: 116 MG, CYCLIC (CYCLE 3) EVERY THREE WEEKS
     Dates: start: 201805, end: 201805
  4. DOCETAXEL [Suspect]
     Active Substance: DOCETAXEL
     Dosage: 116 MG, CYCLIC (CYCLE 4) EVERY THREE WEEKS
     Dates: start: 201806, end: 201806
  5. DOCETAXEL [Suspect]
     Active Substance: DOCETAXEL
     Dosage: 116 MG, CYCLIC (CYCLE 5) EVERY THREE WEEKS
     Dates: start: 201806, end: 201806
  6. DOCETAXEL [Suspect]
     Active Substance: DOCETAXEL
     Dosage: 116 MG, CYCLIC (CYCLE 6) EVERY THREE WEEKS
     Dates: start: 20180718, end: 20180718
  7. TAXOTERE [Suspect]
     Active Substance: DOCETAXEL
     Indication: Breast cancer metastatic
     Dosage: 165 MG, CYCLIC (CYCLE 1) EVERY THREE WEEKS
     Dates: start: 20180330, end: 20180330
  8. TAXOTERE [Suspect]
     Active Substance: DOCETAXEL
     Dosage: 124 MG, CYCLIC (CYCLE 2) EVERY THREE WEEKS
     Dates: start: 201804, end: 201804
  9. TAXOTERE [Suspect]
     Active Substance: DOCETAXEL
     Dosage: 116 MG, CYCLIC (CYCLE 3) EVERY THREE WEEKS
     Dates: start: 201805, end: 201805
  10. TAXOTERE [Suspect]
     Active Substance: DOCETAXEL
     Dosage: 116 MG, CYCLIC (CYCLE 4) EVERY THREE WEEKS
     Dates: start: 201806, end: 201806
  11. TAXOTERE [Suspect]
     Active Substance: DOCETAXEL
     Dosage: 116 MG, CYCLIC (CYCLE 5) EVERY THREE WEEKS
     Dates: start: 201806, end: 201806
  12. TAXOTERE [Suspect]
     Active Substance: DOCETAXEL
     Dosage: 116 MG, CYCLIC (CYCLE 6) EVERY THREE WEEKS
     Dates: start: 20180718, end: 20180718
  13. DOCETAXEL [Suspect]
     Active Substance: DOCETAXEL
     Indication: Breast cancer metastatic
     Dosage: 165 MG, CYCLIC (CYCLE 1) EVERY THREE WEEKS
     Dates: start: 20180330, end: 20180330
  14. DOCETAXEL [Suspect]
     Active Substance: DOCETAXEL
     Dosage: 124 MG, CYCLIC (CYCLE 2) EVERY THREE WEEKS
     Dates: start: 201804, end: 201804
  15. DOCETAXEL [Suspect]
     Active Substance: DOCETAXEL
     Dosage: 116 MG, CYCLIC (CYCLE 3) EVERY THREE WEEKS
     Dates: start: 201805, end: 201805
  16. DOCETAXEL [Suspect]
     Active Substance: DOCETAXEL
     Dosage: 116 MG, CYCLIC (CYCLE  4) EVERY THREE WEEKS
     Dates: start: 201806, end: 201806
  17. DOCETAXEL [Suspect]
     Active Substance: DOCETAXEL
     Dosage: 116 MG, CYCLIC (CYCLE 5) EVERY THREE WEEKS
     Dates: start: 201806, end: 201806
  18. DOCETAXEL [Suspect]
     Active Substance: DOCETAXEL
     Dosage: 116 MG, CYCLIC (CYCLE 6) EVERY THREE WEEKS
     Dates: start: 20180718, end: 20180718
  19. PERJETA [Concomitant]
     Active Substance: PERTUZUMAB
     Indication: Chemotherapy
     Dosage: UNK
  20. HERCEPTIN [Concomitant]
     Active Substance: TRASTUZUMAB
     Indication: Chemotherapy
     Dosage: UNK
  21. CARBOPLATIN [Concomitant]
     Active Substance: CARBOPLATIN
     Indication: Chemotherapy
     Dosage: UNK

REACTIONS (3)
  - Lacrimation increased [Recovering/Resolving]
  - Lacrimal structure injury [Not Recovered/Not Resolved]
  - Anger [Not Recovered/Not Resolved]

NARRATIVE: CASE EVENT DATE: 20180506
